FAERS Safety Report 7450422-X (Version None)
Quarter: 2011Q2

REPORT INFORMATION
  Report Type: 
  Country: None (occurrence: None)
  Receive Date: 20110429
  Receipt Date: 20110429
  Transmission Date: 20111010
  Serious: Yes (Life-Threatening, Hospitalization, Disabling)
  Sender: FDA-Public Use
  Company Number: None

PATIENT
  Sex: Female
  Weight: 62.5964 kg

DRUGS (1)
  1. FOSAMAX [Suspect]
     Indication: OSTEOPENIA
     Dosage: DAILY PO
     Route: 048
     Dates: start: 19960101, end: 20080511

REACTIONS (7)
  - PULMONARY EMBOLISM [None]
  - PAIN IN EXTREMITY [None]
  - GAIT DISTURBANCE [None]
  - PNEUMONIA [None]
  - FEMUR FRACTURE [None]
  - THROMBOSIS [None]
  - SURGICAL PROCEDURE REPEATED [None]
